FAERS Safety Report 8493894-4 (Version None)
Quarter: 2012Q3

REPORT INFORMATION
  Report Type: 
  Country: None (occurrence: None)
  Receive Date: 20120707
  Receipt Date: 20120702
  Transmission Date: 20120928
  Serious: Yes (Other)
  Sender: FDA-Public Use
  Company Number: US-BAYER-2012-065776

PATIENT
  Age: 62 Year
  Sex: Female
  Weight: 99.61 kg

DRUGS (18)
  1. VITAMIN A AND D [Concomitant]
     Route: 061
  2. DEMEROL [Concomitant]
     Indication: PAIN
     Dosage: 50 MG, PRN, EVERY 8 HOURS
     Route: 048
  3. HUMIRA [Concomitant]
     Dosage: 40 MG, ONCE
     Route: 061
  4. GLUCOSAMINE SULFATE W/CHONDROITIN [Concomitant]
     Dosage: 1 DF, BID (500-400MG)
     Route: 048
  5. PLAQUENIL [Concomitant]
     Dosage: UNK UNK, BID
     Route: 048
  6. PROTONIX [Concomitant]
     Dosage: 40 MG, QD
     Route: 048
  7. PLAVIX [Concomitant]
     Dosage: 75 MG, QD
     Route: 048
  8. CORGARD [Concomitant]
     Dosage: 60 MG, QD
     Route: 048
  9. ZOCOR [Concomitant]
     Dosage: 40 MG, HS
  10. HALCION [Concomitant]
     Dosage: 250 ?G, PRN
     Route: 048
  11. ESTRACE [Concomitant]
     Dosage: 1 DF, QD
     Route: 048
  12. MULTIPLE VITAMINS [Concomitant]
     Dosage: 1 DF, QD
     Route: 048
  13. FLOVENT HFA [Concomitant]
     Dosage: 2 PUFF(S), PRN
     Route: 055
  14. DELTASONE [Concomitant]
     Dosage: 7.5 MG, QD
     Route: 048
  15. ASPIRIN [Suspect]
     Dosage: 1 DF, QD
     Route: 048
  16. LOVAZA [Concomitant]
     Dosage: 2 G, BID
     Route: 048
  17. VITAMIN D [Concomitant]
     Dosage: UNK
     Route: 048
  18. TOBREX [Concomitant]
     Dosage: UNK UNK, TID

REACTIONS (2)
  - DRUG HYPERSENSITIVITY [None]
  - HAEMATOCHEZIA [None]
